FAERS Safety Report 10166231 (Version 1)
Quarter: 2014Q2

REPORT INFORMATION
  Report Type: Not Available
  Country: US (occurrence: US)
  Receive Date: 20140512
  Receipt Date: 20140512
  Transmission Date: 20141212
  Serious: Yes (Hospitalization)
  Sender: FDA-Public Use
  Company Number: US-LUPIN PHARMACEUTICALS INC.-E2B_00001993

PATIENT
  Age: 70 Year
  Sex: Male
  Weight: 83.99 kg

DRUGS (1)
  1. LISINOPRIL TABLETS USP 10MG [Suspect]
     Indication: HYPERTENSION
     Dates: start: 20140418, end: 20140428

REACTIONS (1)
  - Cough [Not Recovered/Not Resolved]
